FAERS Safety Report 4368324-4 (Version None)
Quarter: 2004Q2

REPORT INFORMATION
  Report Type: 
  Country: None (occurrence: None)
  Receive Date: 20040602
  Receipt Date: 20040413
  Transmission Date: 20050107
  Serious: Yes (Death, Other)
  Sender: FDA-Public Use
  Company Number: PHEH2004US04183

PATIENT
  Age: 74 Year
  Sex: Male

DRUGS (7)
  1. AREDIA [Suspect]
     Indication: MULTIPLE MYELOMA
     Dosage: 90 MG EVERY MONTH
     Route: 042
     Dates: start: 19960501, end: 20020410
  2. AREDIA [Suspect]
     Dosage: 60 MG MONTHLY
     Route: 042
     Dates: start: 20021024
  3. ZOMETA [Suspect]
     Indication: MULTIPLE MYELOMA
     Dosage: 4 MG MONTHLY
     Dates: start: 20020507, end: 20020926
  4. ANAESTHETICS, LOCAL [Concomitant]
  5. MELPHALAN [Concomitant]
     Dosage: 14 MG PER DAY FOR 4 DAYS MONTHLY
     Dates: start: 19960422
  6. PREDNISONE TAB [Concomitant]
     Dosage: 120 MG PER DAY FOR 4 DAYS MONTHL
     Dates: start: 19960422
  7. DEXAMETHASONE [Concomitant]
     Dosage: 10 MG, UNK
     Dates: start: 20020701

REACTIONS (20)
  - BLOOD IMMUNOGLOBULIN G INCREASED [None]
  - BLOOD IMMUNOGLOBULIN M DECREASED [None]
  - BLOOD UREA ABNORMAL [None]
  - BONE DEBRIDEMENT [None]
  - BONE DISORDER [None]
  - BREATH ODOUR [None]
  - DEATH [None]
  - DYSGEUSIA [None]
  - ENDODONTIC PROCEDURE [None]
  - GINGIVAL PAIN [None]
  - ORAL DISCHARGE [None]
  - ORAL PAIN [None]
  - OSTEITIS [None]
  - OSTEOMYELITIS [None]
  - OSTEONECROSIS [None]
  - SOFT TISSUE DISORDER [None]
  - SWELLING [None]
  - TOOTH ABSCESS [None]
  - TOOTH EXTRACTION [None]
  - TOOTH FRACTURE [None]
